FAERS Safety Report 10905595 (Version 2)
Quarter: 2015Q2

REPORT INFORMATION
  Report Type: Spontaneous
  Country: US (occurrence: US)
  Receive Date: 20150311
  Receipt Date: 20150403
  Transmission Date: 20150821
  Serious: Yes (Hospitalization, Other)
  Sender: FDA-Public Use
  Company Number: US-PFIZER INC-2015082745

PATIENT
  Age: 54 Year
  Sex: Male
  Weight: 99.77 kg

DRUGS (2)
  1. VIAGRA [Suspect]
     Active Substance: SILDENAFIL CITRATE
     Indication: ERECTILE DYSFUNCTION
     Dosage: 3-4 TIMES A WEEK
     Dates: start: 1999
  2. VIAGRA [Suspect]
     Active Substance: SILDENAFIL CITRATE
     Dosage: 100 MG, UNK
     Dates: start: 200010

REACTIONS (4)
  - Vision blurred [Not Recovered/Not Resolved]
  - Headache [Unknown]
  - Blood urine present [Unknown]
  - Penile discharge [Unknown]
